FAERS Safety Report 7095262-9 (Version None)
Quarter: 2010Q4

REPORT INFORMATION
  Report Type: 
  Country: None (occurrence: None)
  Receive Date: 20101111
  Receipt Date: 20101102
  Transmission Date: 20110411
  Serious: Yes (Hospitalization)
  Sender: FDA-Public Use
  Company Number: US-BAYER-201032741NA

PATIENT
  Sex: Female

DRUGS (1)
  1. MIRENA [Suspect]
     Indication: PRODUCT USED FOR UNKNOWN INDICATION
     Dosage: FREQUENCY: CONTINUOUS
     Route: 015
     Dates: end: 20100521

REACTIONS (4)
  - ABDOMINAL PAIN LOWER [None]
  - INTRA-ABDOMINAL HAEMORRHAGE [None]
  - PELVIC PAIN [None]
  - RUPTURED ECTOPIC PREGNANCY [None]
